FAERS Safety Report 5511903-9 (Version None)
Quarter: 2007Q4

REPORT INFORMATION
  Report Type: 
  Country: None (occurrence: None)
  Receive Date: 20071109
  Receipt Date: 20071025
  Transmission Date: 20080405
  Serious: Yes (Hospitalization)
  Sender: FDA-Public Use
  Company Number: DK-GENENTECH-250786

PATIENT
  Sex: Male

DRUGS (5)
  1. BEVACIZUMAB [Suspect]
     Indication: GLIOBLASTOMA
     Dosage: 920 MG, UNK
     Route: 042
     Dates: start: 20070316
  2. CETUXIMAB [Suspect]
     Indication: GLIOBLASTOMA
     Dosage: 500 MG, 1/WEEK
     Route: 042
     Dates: start: 20070316
  3. IRINOTECAN HCL [Suspect]
     Indication: GLIOBLASTOMA
     Dosage: 250 MG, UNK
     Route: 042
     Dates: start: 20070316
  4. LAMICTAL [Concomitant]
     Indication: DRUG USE FOR UNKNOWN INDICATION
     Dates: start: 20000615
  5. MEDROL [Concomitant]
     Indication: DRUG USE FOR UNKNOWN INDICATION
     Dates: start: 20051215

REACTIONS (1)
  - CONVULSION [None]
